FAERS Safety Report 5726872-6 (Version None)
Quarter: 2008Q2

REPORT INFORMATION
  Report Type: 
  Country: None (occurrence: None)
  Receive Date: 20080502
  Receipt Date: 20080422
  Transmission Date: 20081010
  Serious: Yes (Other)
  Sender: FDA-Public Use
  Company Number: US-PFIZER INC-2008036097

PATIENT
  Sex: Female

DRUGS (1)
  1. CHANTIX [Suspect]

REACTIONS (5)
  - CONSTIPATION [None]
  - DIABETES MELLITUS [None]
  - GAIT DISTURBANCE [None]
  - HAEMORRHOIDAL HAEMORRHAGE [None]
  - RECTAL TENESMUS [None]
